FAERS Safety Report 6860932-1 (Version None)
Quarter: 2010Q3

REPORT INFORMATION
  Report Type: 
  Country: None (occurrence: None)
  Receive Date: 20100716
  Receipt Date: 20100702
  Transmission Date: 20110219
  Serious: Yes (Life-Threatening, Hospitalization, Other)
  Sender: FDA-Public Use
  Company Number: AMAG201000279

PATIENT
  Age: 78 Year
  Sex: Female
  Weight: 76.2 kg

DRUGS (17)
  1. FERAHEME [Suspect]
     Indication: IRON DEFICIENCY ANAEMIA
     Dosage: 510 MG, SINGLE; INTRAVENOUS
     Route: 042
     Dates: start: 20100519, end: 20100519
  2. FERAHEME [Suspect]
     Indication: IRON DEFICIENCY ANAEMIA
     Dosage: 510 MG, SINGLE; INTRAVENOUS
     Route: 042
     Dates: start: 20100609, end: 20100609
  3. DIOVAN [Concomitant]
  4. TRAVATAN [Concomitant]
  5. VITAMIN D [Concomitant]
  6. LOTRISONE [Concomitant]
  7. PLAVIX [Concomitant]
  8. ASPIRIN [Concomitant]
  9. TIMOLOL MALEATE [Concomitant]
  10. LASIX [Concomitant]
  11. METOPROLOL TARTRATE [Concomitant]
  12. PANTOPRAZOLE SODIUM [Concomitant]
  13. TRAMADOL HCL [Concomitant]
  14. OMEGA-3 (OMEGA-3 TRIGLYCERIDES) [Concomitant]
  15. IMDUR [Concomitant]
  16. NITROQUICK (GLYCERYL TRINITRATE) [Concomitant]
  17. ZOCOR [Concomitant]

REACTIONS (3)
  - CORONARY ARTERY STENOSIS [None]
  - CORONARY ARTERY THROMBOSIS [None]
  - MYOCARDIAL INFARCTION [None]
